FAERS Safety Report 4664373-7 (Version None)
Quarter: 2005Q2

REPORT INFORMATION
  Report Type: 
  Country: None (occurrence: None)
  Receive Date: 20050518
  Receipt Date: 20041018
  Transmission Date: 20051028
  Serious: Yes (Hospitalization, Disabling)
  Sender: FDA-Public Use
  Company Number: DE-MERCK-0410DEU00512

PATIENT
  Age: 53 Year
  Sex: Female
  Weight: 80 kg

DRUGS (3)
  1. VIOXX [Suspect]
     Indication: ARTHRALGIA
     Route: 048
     Dates: start: 20030501, end: 20040701
  2. VIOXX [Suspect]
     Indication: SCIATICA
     Route: 048
     Dates: start: 20030501, end: 20040701
  3. VENLAFAXINE HYDROCHLORIDE [Concomitant]
     Route: 065
     Dates: start: 20000101

REACTIONS (1)
  - MENIERE'S DISEASE [None]
